FAERS Safety Report 17665715 (Version 1)
Quarter: 2020Q2

REPORT INFORMATION
  Report Type: Spontaneous
  Country: US (occurrence: US)
  Receive Date: 20200414
  Receipt Date: 20200414
  Transmission Date: 20200713
  Serious: No
  Sender: FDA-Public Use
  Company Number: None

PATIENT
  Age: 67 Year
  Sex: Female
  Weight: 81 kg

DRUGS (9)
  1. ATORVASTATIN 20MG, ORAL [Concomitant]
  2. METHOCARBAMOL 500MG, ORAL [Concomitant]
  3. AMLODIPINE 2.5MG, ORAL [Concomitant]
  4. ACETAMINOPHEN 500MG, ORAL [Concomitant]
  5. OYST CAL D 500, 500 - 200U, ORAL [Concomitant]
  6. CYCLOBENZAPRINE 5MG, ORAL [Concomitant]
  7. XALKORI [Suspect]
     Active Substance: CRIZOTINIB
     Indication: LUNG DISORDER
     Route: 048
     Dates: start: 20200324, end: 20200414
  8. METOPROLOL TARTRATE 25MG, ORAL [Concomitant]
  9. DEXAMETHASONE 4MG, ORAL [Concomitant]

REACTIONS (1)
  - Death [None]

NARRATIVE: CASE EVENT DATE: 20200414
